FAERS Safety Report 21289363 (Version 1)
Quarter: 2022Q3

REPORT INFORMATION
  Report Type: Spontaneous
  Country: US (occurrence: US)
  Receive Date: 20220902
  Receipt Date: 20220902
  Transmission Date: 20221026
  Serious: No
  Sender: FDA-Public Use
  Company Number: US-ABBVIE-22K-163-4338182-00

PATIENT
  Age: 71 Year
  Sex: Female
  Weight: 67.6 kg

DRUGS (1)
  1. IMBRUVICA [Suspect]
     Active Substance: IBRUTINIB
     Indication: Non-Hodgkin^s lymphoma recurrent
     Route: 048
     Dates: start: 20220322, end: 20220324

REACTIONS (3)
  - Hypoglycaemia [Not Recovered/Not Resolved]
  - Off label use [Unknown]
  - Blood glucose decreased [Not Recovered/Not Resolved]

NARRATIVE: CASE EVENT DATE: 20220322
